FAERS Safety Report 11509514 (Version 1)
Quarter: 2015Q3

REPORT INFORMATION
  Report Type: Spontaneous
  Country: CA (occurrence: CA)
  Receive Date: 20150915
  Receipt Date: 20150915
  Transmission Date: 20151125
  Serious: Yes (Other)
  Sender: FDA-Public Use
  Company Number: CA-AMGEN-CANSP2015092731

PATIENT
  Age: 80 Year
  Sex: Female

DRUGS (6)
  1. CEPHALEXIN                         /00145501/ [Suspect]
     Active Substance: CEPHALEXIN
     Indication: ANIMAL BITE
     Dosage: UNK
     Route: 048
  2. COVERSYL PLUS                      /01421201/ [Concomitant]
     Indication: BLOOD PRESSURE INCREASED
     Dosage: 8/2.5, QD
     Route: 048
  3. HYDROXYCHLOROQUINE [Concomitant]
     Active Substance: HYDROXYCHLOROQUINE
     Indication: RHEUMATOID ARTHRITIS
     Dosage: 200 MG, QD
     Route: 048
  4. CLAVULIN                           /00756801/ [Concomitant]
     Active Substance: AMOXICILLIN\CLAVULANIC ACID
     Indication: ANIMAL BITE
     Dosage: 875 UNK, BID
     Route: 048
     Dates: start: 20150828, end: 20150902
  5. PROLIA [Suspect]
     Active Substance: DENOSUMAB
     Indication: OSTEOPOROSIS POSTMENOPAUSAL
     Dosage: 60 MG, UNK
     Route: 058
     Dates: start: 20150823
  6. APO-AMOXI CLAV [Suspect]
     Active Substance: AMOXICILLIN\CLAVULANIC ACID
     Indication: PRODUCT USED FOR UNKNOWN INDICATION
     Dosage: 875 UNK, BID
     Route: 065
     Dates: start: 20150828, end: 20150902

REACTIONS (4)
  - Infected bite [Unknown]
  - Rash [Recovering/Resolving]
  - Pruritus [Unknown]
  - Animal bite [Unknown]

NARRATIVE: CASE EVENT DATE: 20150831
